FAERS Safety Report 8005637-9 (Version None)
Quarter: 2011Q4

REPORT INFORMATION
  Report Type: 
  Country: None (occurrence: None)
  Receive Date: 20111223
  Receipt Date: 20111222
  Transmission Date: 20120403
  Serious: Yes (Hospitalization, Other)
  Sender: FDA-Public Use
  Company Number: US-ROXANE LABORATORIES, INC.-2011-RO-00749RO

PATIENT
  Sex: Male
  Weight: 69 kg

DRUGS (7)
  1. ALBUTEROL [Concomitant]
  2. PREDNISONE TAB [Suspect]
     Indication: PROSTATE CANCER METASTATIC
     Dosage: 10 MG
     Route: 048
  3. MITOXANTRONE [Suspect]
     Indication: PROSTATE CANCER METASTATIC
     Dates: end: 20091201
  4. CIXUTUMUMAB [Suspect]
     Indication: PROSTATE CANCER METASTATIC
     Dates: start: 20090731, end: 20110511
  5. OXYCODONE HCL [Concomitant]
  6. GABAPENTIN [Concomitant]
  7. INSULIN LISPRO [Concomitant]

REACTIONS (2)
  - COLITIS [None]
  - EJECTION FRACTION DECREASED [None]
